FAERS Safety Report 23037666 (Version 3)
Quarter: 2023Q4

REPORT INFORMATION
  Report Type: Spontaneous
  Country: RU (occurrence: RU)
  Receive Date: 20231006
  Receipt Date: 20231113
  Transmission Date: 20240110
  Serious: Yes (Hospitalization)
  Sender: FDA-Public Use
  Company Number: RU-JNJFOC-20230963451

PATIENT
  Age: 15 Year
  Sex: Male
  Weight: 55 kg

DRUGS (4)
  1. INVEGA [Suspect]
     Active Substance: PALIPERIDONE
     Indication: Depression
     Route: 048
     Dates: start: 20230919, end: 20230920
  2. SULPIRIDE [Concomitant]
     Active Substance: SULPIRIDE
     Dates: start: 20230913
  3. FEVARIN [Concomitant]
     Active Substance: FLUVOXAMINE MALEATE
  4. 4-AMINO-3-PHENYLBUTYRIC ACID [Concomitant]
     Active Substance: 4-AMINO-3-PHENYLBUTYRIC ACID

REACTIONS (4)
  - Toxicity to various agents [Recovered/Resolved]
  - Extrapyramidal disorder [Recovered/Resolved]
  - Lip swelling [Recovered/Resolved]
  - Off label use [Unknown]

NARRATIVE: CASE EVENT DATE: 20230920
